FAERS Safety Report 4580727-1 (Version None)
Quarter: 2005Q1

REPORT INFORMATION
  Report Type: 
  Country: None (occurrence: None)
  Receive Date: 20050214
  Receipt Date: 20040519
  Transmission Date: 20050727
  Serious: Yes (Other)
  Sender: FDA-Public Use
  Company Number: US-GLAXOSMITHKLINE-A0511457A

PATIENT
  Age: 32 Year
  Sex: Female
  Weight: 65 kg

DRUGS (4)
  1. LAMICTAL [Suspect]
     Indication: BIPOLAR DISORDER
     Dosage: 200MG PER DAY
     Route: 048
     Dates: start: 20031025
  2. LITHIUM [Suspect]
  3. KLONOPIN [Concomitant]
     Indication: BIPOLAR DISORDER
     Route: 065
     Dates: start: 20030401
  4. ZOLOFT [Concomitant]
     Indication: BIPOLAR DISORDER
     Dosage: 50MG PER DAY
     Route: 048
     Dates: start: 20040201

REACTIONS (4)
  - CONTUSION [None]
  - HYPOTHYROIDISM [None]
  - RASH [None]
  - THROMBOCYTOPENIA [None]
